FAERS Safety Report 6900134-3 (Version None)
Quarter: 2010Q3

REPORT INFORMATION
  Report Type: 
  Country: None (occurrence: None)
  Receive Date: 20100708
  Receipt Date: 20090624
  Transmission Date: 20110219
  Serious: Yes (Other)
  Sender: FDA-Public Use
  Company Number: 2009233450

PATIENT
  Age: 54 Year
  Sex: Male
  Weight: 90.7 kg

DRUGS (1)
  1. CHANTIX [Suspect]
     Indication: SMOKING CESSATION THERAPY
     Dates: start: 20090601, end: 20090601

REACTIONS (2)
  - HALLUCINATION [None]
  - PALPITATIONS [None]
